FAERS Safety Report 5966203-X (Version None)
Quarter: 2008Q4

REPORT INFORMATION
  Report Type: 
  Country: None (occurrence: None)
  Receive Date: 20081125
  Receipt Date: 20081120
  Transmission Date: 20090506
  Serious: Yes (Hospitalization)
  Sender: FDA-Public Use
  Company Number: CZ-EISAI MEDICAL RESEARCH-E2020-03741-SPO-CZ

PATIENT
  Age: 61 Year
  Sex: Male

DRUGS (3)
  1. ARICEPT [Suspect]
     Indication: DEMENTIA
     Route: 048
     Dates: start: 20080612, end: 20080713
  2. ARICEPT [Suspect]
     Route: 048
     Dates: start: 20080714, end: 20080901
  3. PIRACETAM [Concomitant]
     Route: 048
     Dates: end: 20080901

REACTIONS (1)
  - SICK SINUS SYNDROME [None]
